FAERS Safety Report 17739870 (Version 2)
Quarter: 2020Q2

REPORT INFORMATION
  Report Type: Spontaneous
  Country: US (occurrence: US)
  Receive Date: 20200504
  Receipt Date: 20200520
  Transmission Date: 20200714
  Serious: Yes (Hospitalization)
  Sender: FDA-Public Use
  Company Number: US-ELI_LILLY_AND_COMPANY-US202004008904

PATIENT
  Sex: Female

DRUGS (7)
  1. NOVOLOG [Concomitant]
     Active Substance: INSULIN ASPART
     Indication: DIABETES MELLITUS
     Dosage: 90 U, DAILY
  2. HUMALOG [Suspect]
     Active Substance: INSULIN LISPRO
     Indication: DIABETES MELLITUS
     Dosage: UNK, UNKNOWN
     Route: 058
     Dates: start: 2012
  3. HUMALOG [Suspect]
     Active Substance: INSULIN LISPRO
     Indication: DIABETES MELLITUS
     Dosage: UNK UNK, UNKNOWN
     Route: 058
     Dates: start: 2012
  4. BASAGLAR [Suspect]
     Active Substance: INSULIN GLARGINE
     Dosage: 70 U, EACH MORNING
     Route: 058
  5. BASAGLAR [Suspect]
     Active Substance: INSULIN GLARGINE
     Indication: DIABETES MELLITUS
     Dosage: 62 U, BID
     Route: 058
     Dates: start: 2012
  6. BASAGLAR [Suspect]
     Active Substance: INSULIN GLARGINE
     Dosage: 62 U, EACH EVENING
     Route: 058
  7. NOVOLOG [Concomitant]
     Active Substance: INSULIN ASPART
     Dosage: UNK

REACTIONS (3)
  - Blood glucose increased [Recovering/Resolving]
  - Inappropriate schedule of product administration [Unknown]
  - Cerebrovascular accident [Recovering/Resolving]
